FAERS Safety Report 9775332 (Version 2)
Quarter: 2014Q1

REPORT INFORMATION
  Report Type: Spontaneous
  Country: US (occurrence: US)
  Receive Date: 20131220
  Receipt Date: 20140318
  Transmission Date: 20141002
  Serious: No
  Sender: FDA-Public Use
  Company Number: US-GALDERMA-US13003239

PATIENT
  Age: 54 Year
  Sex: Male

DRUGS (8)
  1. MIRVASO (BRIMONIDINE) TOPICAL GEL, 0.33% [Suspect]
     Indication: ROSACEA
     Dosage: 0.33%
     Route: 061
     Dates: start: 20131012, end: 20131015
  2. MIRVASO (BRIMONIDINE) TOPICAL GEL, 0.33% [Suspect]
     Indication: SOLAR LENTIGO
  3. CERAVE HYDRATING CLEANSER [Concomitant]
     Indication: THERAPEUTIC SKIN CARE TOPICAL
     Route: 061
     Dates: start: 2008
  4. BLEMISH PRODUCT [Concomitant]
     Indication: ACNE
     Route: 061
  5. VITAMIN A AND E [Concomitant]
  6. ZINC [Concomitant]
  7. SAW PALMETTO [Concomitant]
     Dosage: 160 MG
  8. RESVERATROL [Concomitant]
     Dosage: 50 MG

REACTIONS (2)
  - Erythema [Recovered/Resolved]
  - Flushing [Recovered/Resolved]
